FAERS Safety Report 6028712-7 (Version None)
Quarter: 2009Q1

REPORT INFORMATION
  Report Type: 
  Country: None (occurrence: None)
  Receive Date: 20090106
  Receipt Date: 20081220
  Transmission Date: 20090719
  Serious: Yes (Other)
  Sender: FDA-Public Use
  Company Number: BR-PFIZER INC-2008052059

PATIENT

DRUGS (3)
  1. CHAMPIX [Suspect]
     Indication: SMOKING CESSATION THERAPY
     Route: 048
     Dates: start: 20071201
  2. ATENOLOL [Concomitant]
  3. CHLORTHALIDONE [Concomitant]

REACTIONS (2)
  - CARDIAC FIBRILLATION [None]
  - DRUG INEFFECTIVE [None]
